FAERS Safety Report 5191408-8 (Version None)
Quarter: 2006Q4

REPORT INFORMATION
  Report Type: 
  Country: None (occurrence: None)
  Receive Date: 20061220
  Receipt Date: 20061220
  Transmission Date: 20070319
  Serious: Yes (Other)
  Sender: FDA-Public Use
  Company Number: None

PATIENT
  Age: 39 Year
  Sex: Female

DRUGS (2)
  1. DOXYCYCLINE [Suspect]
     Dosage: ORAL;;;1:24 DAY(S)
     Route: 048
     Dates: start: 20060828, end: 20060829
  2. MINOCYCLINE HCL [Suspect]
     Dosage: ORAL;;;1:28 DAY(S)
     Route: 048
     Dates: start: 20060829, end: 20060830

REACTIONS (1)
  - URTICARIA [None]
